FAERS Safety Report 18589569 (Version 2)
Quarter: 2020Q4

REPORT INFORMATION
  Report Type: Spontaneous
  Country: US (occurrence: US)
  Receive Date: 20201208
  Receipt Date: 20201211
  Transmission Date: 20210114
  Serious: No
  Sender: FDA-Public Use
  Company Number: US-TEVA-2020-US-1856869

PATIENT
  Sex: Female

DRUGS (3)
  1. CIPRO [Suspect]
     Active Substance: CIPROFLOXACIN HYDROCHLORIDE
     Dosage: I TABLET EVERY 12 HOURS
     Route: 048
     Dates: start: 20201120
  2. METRONIDAZOLE TEVA [Suspect]
     Active Substance: METRONIDAZOLE
     Dosage: 1500 MILLIGRAM DAILY; 500 MG,BY MOUTH THREE TIMES DAILY
     Route: 048
     Dates: start: 20201120
  3. METRONIDAZOLE TEVA [Suspect]
     Active Substance: METRONIDAZOLE
     Dosage: 1500 MILLIGRAM DAILY; 500 MG,BY MOUTH THREE TIMES DAILY
     Route: 048
     Dates: start: 2020

REACTIONS (3)
  - Muscular weakness [Recovered/Resolved]
  - Tremor [Not Recovered/Not Resolved]
  - Dizziness [Recovered/Resolved]
